FAERS Safety Report 5291429-0 (Version None)
Quarter: 2007Q2

REPORT INFORMATION
  Report Type: 
  Country: None (occurrence: None)
  Receive Date: 20070402
  Receipt Date: 20070320
  Transmission Date: 20071010
  Serious: Yes (Life-Threatening, Hospitalization)
  Sender: FDA-Public Use
  Company Number: GXKR2007GB02705

PATIENT
  Age: 49 Year
  Sex: Female

DRUGS (4)
  1. PARACETAMOL (NGX)(PARACETAMOL) UNKNOWN [Suspect]
     Dosage: 20 DF, 10 G PARACETAMOL
  2. CO-PROXAMOL(DEXTROPROPOXYPHENE HYDROCHLORIDE, PARACETAMOL) [Suspect]
     Dosage: 60 DF, 20G PARACETAMOL, 2G DEXTROPROPOXYPHENE
  3. RISPERIDONE [Suspect]
  4. SERTRALINE [Suspect]

REACTIONS (12)
  - ALANINE AMINOTRANSFERASE INCREASED [None]
  - BLOOD ALKALINE PHOSPHATASE INCREASED [None]
  - BRAIN OEDEMA [None]
  - CSF GLUCOSE DECREASED [None]
  - GAMMA-GLUTAMYLTRANSFERASE INCREASED [None]
  - HAEMODIALYSIS [None]
  - HEPATIC ENCEPHALOPATHY [None]
  - INTRACRANIAL PRESSURE INCREASED [None]
  - MULTIPLE DRUG OVERDOSE INTENTIONAL [None]
  - OLIGURIA [None]
  - PULMONARY OEDEMA [None]
  - SOMNOLENCE [None]
